FAERS Safety Report 5531829-4 (Version None)
Quarter: 2007Q4

REPORT INFORMATION
  Report Type: 
  Country: None (occurrence: None)
  Receive Date: 20071128
  Receipt Date: 20071120
  Transmission Date: 20080405
  Serious: Yes (Hospitalization)
  Sender: FDA-Public Use
  Company Number: 2007SP023318

PATIENT
  Age: 64 Year
  Sex: Female

DRUGS (1)
  1. TEMODAR [Suspect]
     Indication: COLON CANCER
     Dosage: 100 MG;QD;PO
     Route: 048

REACTIONS (2)
  - DEHYDRATION [None]
  - VOMITING [None]
